FAERS Safety Report 5157072-9 (Version None)
Quarter: 2006Q4

REPORT INFORMATION
  Report Type: 
  Country: None (occurrence: None)
  Receive Date: 20061116
  Receipt Date: 20061107
  Transmission Date: 20070319
  Serious: Yes (Hospitalization)
  Sender: FDA-Public Use
  Company Number: 2006BI014544

PATIENT
  Age: 57 Year
  Sex: Female

DRUGS (13)
  1. AVONEX [Suspect]
     Indication: MULTIPLE SCLEROSIS
     Dosage: 30 UG; QW; IM
     Route: 030
     Dates: start: 19920101
  2. ACTONEL [Concomitant]
  3. CALCIUM [Concomitant]
  4. CARBAMAZEPINE [Concomitant]
  5. CENTRUM [Concomitant]
  6. ESTRADIOL INJ [Concomitant]
  7. KLONOPIN [Concomitant]
  8. MIRAPEX [Concomitant]
  9. PROTONIX [Concomitant]
  10. SOLU-MEDROL [Concomitant]
  11. LUNESTA [Concomitant]
  12. PROVIGIL [Concomitant]
  13. TYLENOL [Concomitant]

REACTIONS (2)
  - LUMBAR SPINAL STENOSIS [None]
  - SPINAL OSTEOARTHRITIS [None]
